FAERS Safety Report 19990378 (Version 1)
Quarter: 2021Q4

REPORT INFORMATION
  Report Type: Spontaneous
  Country: US (occurrence: US)
  Receive Date: 20211021
  Receipt Date: 20211021
  Transmission Date: 20220303
  Serious: Yes (Life-Threatening, Hospitalization)
  Sender: FDA-Public Use
  Company Number: None

PATIENT
  Age: 66 Year
  Sex: Male
  Weight: 115.21 kg

DRUGS (4)
  1. REVLIMID [Suspect]
     Active Substance: LENALIDOMIDE
     Indication: Plasma cell myeloma
     Dosage: ?          OTHER FREQUENCY:1-14 EVERY 21 DAYS;
     Route: 048
     Dates: start: 20210201, end: 20210923
  2. REVLIMID [Concomitant]
     Active Substance: LENALIDOMIDE
  3. DEXAMETHASONE [Concomitant]
     Active Substance: DEXAMETHASONE
  4. VELCADE [Concomitant]
     Active Substance: BORTEZOMIB

REACTIONS (1)
  - Pulmonary embolism [None]

NARRATIVE: CASE EVENT DATE: 20210923
